FAERS Safety Report 4464885-5 (Version None)
Quarter: 2004Q4

REPORT INFORMATION
  Report Type: 
  Country: None (occurrence: None)
  Receive Date: 20041004
  Receipt Date: 20040113
  Transmission Date: 20050328
  Serious: No
  Sender: FDA-Public Use
  Company Number: 359450

PATIENT
  Age: 57 Year
  Sex: Female

DRUGS (5)
  1. COREG [Suspect]
     Indication: HYPERTENSION
     Dosage: 3.125MG PER DAY
     Route: 048
  2. PREMARIN [Concomitant]
  3. NIACIN [Concomitant]
  4. MULTI-VITAMIN [Concomitant]
  5. HERBAL SUPPLEMENT [Concomitant]

REACTIONS (2)
  - BACK PAIN [None]
  - DYSPNOEA [None]
